FAERS Safety Report 6643205-1 (Version None)
Quarter: 2010Q1

REPORT INFORMATION
  Report Type: 
  Country: None (occurrence: None)
  Receive Date: 20100319
  Receipt Date: 20100315
  Transmission Date: 20100710
  Serious: Yes (Death, Other)
  Sender: FDA-Public Use
  Company Number: PHHY2010DE04391

PATIENT
  Sex: Male
  Weight: 86 kg

DRUGS (13)
  1. ALISKIREN ALI+ [Suspect]
     Indication: HYPERTENSION
     Dosage: UNK
     Route: 048
     Dates: start: 20081208
  2. ACTRAPHANE [Suspect]
     Indication: DIABETES MELLITUS
     Dosage: 12 IE-0-8 IE
     Route: 058
     Dates: start: 20091023
  3. INSULIN [Suspect]
     Indication: DIABETES MELLITUS
  4. ASPIRIN [Concomitant]
     Dosage: 100MG, ONCE IN MORNING DAILY
     Route: 048
     Dates: start: 20091023
  5. RISPERDAL [Suspect]
     Dosage: 0.5 MG, BID
     Route: 048
     Dates: start: 20091023
  6. VIGANTOLETTEN [Suspect]
     Dosage: 1000 IU, ONCE DAILY
     Route: 048
     Dates: start: 20091023
  7. NEORECORMON [Concomitant]
     Dosage: ON DAYS OF DIALYSIS
     Dates: start: 20091023
  8. ACC LONG [Concomitant]
     Dosage: 600 MG, ONCE DAILY
     Route: 048
     Dates: start: 20091023
  9. BETA BLOCKING AGENTS [Concomitant]
  10. CALCIUM CHANNEL BLOCKERS [Concomitant]
  11. RAMIPRIL [Concomitant]
     Dosage: 5 MG, BID
     Dates: start: 20091023
  12. AMLODIPINE [Concomitant]
     Dosage: 5MG, TWICE DAILY
     Route: 048
     Dates: start: 20091023
  13. METOPROLOL SUCCINATE [Concomitant]
     Dosage: 95MG, ONCE DAILY
     Route: 048
     Dates: start: 20091023

REACTIONS (39)
  - ANGINA PECTORIS [None]
  - ARTERIAL CATHETERISATION [None]
  - BRADYCARDIA [None]
  - BRONCHIAL SECRETION RETENTION [None]
  - CARDIAC ARREST [None]
  - CARDIAC FAILURE CHRONIC [None]
  - CARDIOMEGALY [None]
  - CATHETER PLACEMENT [None]
  - CHRONIC OBSTRUCTIVE PULMONARY DISEASE [None]
  - CONJUNCTIVAL HAEMORRHAGE [None]
  - CORONARY ARTERY DISEASE [None]
  - DIABETIC NEPHROPATHY [None]
  - DRUG HYPERSENSITIVITY [None]
  - DYSPNOEA [None]
  - ENDOSCOPY UPPER GASTROINTESTINAL TRACT [None]
  - ENTEROCOLITIS BACTERIAL [None]
  - GASTRIC MUCOSAL LESION [None]
  - GASTROSTOMY TUBE INSERTION [None]
  - HAEMODIALYSIS [None]
  - HEPATOMEGALY [None]
  - HYPERKALAEMIA [None]
  - HYPERPHOSPHATAEMIA [None]
  - HYPERTENSIVE CRISIS [None]
  - LABORATORY TEST ABNORMAL [None]
  - LEFT VENTRICULAR DYSFUNCTION [None]
  - MECHANICAL VENTILATION [None]
  - NEPHROANGIOSCLEROSIS [None]
  - NEPHROGENIC ANAEMIA [None]
  - OEDEMA PERIPHERAL [None]
  - PLEURAL DISORDER [None]
  - PLEURAL EFFUSION [None]
  - PNEUMONIA [None]
  - RASH GENERALISED [None]
  - RENAL FAILURE ACUTE [None]
  - RENAL FAILURE CHRONIC [None]
  - RESPIRATORY FAILURE [None]
  - SLEEP APNOEA SYNDROME [None]
  - STAPHYLOCOCCAL INFECTION [None]
  - STRIDOR [None]
